FAERS Safety Report 10919008 (Version 1)
Quarter: 2015Q1

REPORT INFORMATION
  Report Type: Spontaneous
  Country: US (occurrence: US)
  Receive Date: 20150316
  Receipt Date: 20150316
  Transmission Date: 20150721
  Serious: No
  Sender: FDA-Public Use
  Company Number: US-ASTELLAS-2015US005266

PATIENT
  Sex: Male

DRUGS (1)
  1. XTANDI [Suspect]
     Active Substance: ENZALUTAMIDE
     Indication: PROSTATE CANCER METASTATIC
     Dosage: 160 MG, ONCE DAILY (FOUR 40 MG CAPSULES)
     Route: 048
     Dates: start: 201501, end: 20150131

REACTIONS (2)
  - Asthenia [Not Recovered/Not Resolved]
  - Prostatic specific antigen increased [Unknown]
